FAERS Safety Report 24684406 (Version 1)
Quarter: 2024Q4

REPORT INFORMATION
  Report Type: Spontaneous
  Country: US (occurrence: US)
  Receive Date: 20241202
  Receipt Date: 20241202
  Transmission Date: 20250115
  Serious: No
  Sender: NOVARTIS
  Company Number: US-HALEON-2211421

PATIENT

DRUGS (1)
  1. LAMISIL [Suspect]
     Active Substance: TERBINAFINE HYDROCHLORIDE
     Indication: Product used for unknown indication
     Dosage: 125 ML (ATHLETES FOOT SPRAY, TOPICAL)
     Route: 065

REACTIONS (1)
  - Drug ineffective [Unknown]
